FAERS Safety Report 21704287 (Version 2)
Quarter: 2022Q4

REPORT INFORMATION
  Report Type: Report from Study
  Country: IL (occurrence: IL)
  Receive Date: 20221209
  Receipt Date: 20221215
  Transmission Date: 20230113
  Serious: Yes (Hospitalization)
  Sender: FDA-Public Use
  Company Number: IL-002147023-NVSC2022IL284656

PATIENT
  Age: 74 Year
  Sex: Female

DRUGS (3)
  1. SANDOSTATIN LAR DEPOT [Suspect]
     Active Substance: OCTREOTIDE ACETATE
     Indication: Neuroendocrine tumour
     Dosage: 30 MG, Q2W (INTRAGLUTEAL)
     Route: 030
     Dates: start: 20131209
  2. SANDOSTATIN LAR DEPOT [Suspect]
     Active Substance: OCTREOTIDE ACETATE
  3. SANDOSTATIN LAR DEPOT [Suspect]
     Active Substance: OCTREOTIDE ACETATE

REACTIONS (3)
  - Cardiac disorder [Recovering/Resolving]
  - Malaise [Unknown]
  - Inappropriate schedule of product administration [Unknown]
